FAERS Safety Report 17042068 (Version 9)
Quarter: 2021Q4

REPORT INFORMATION
  Report Type: Report from Study
  Country: ES (occurrence: None)
  Receive Date: 20191118
  Receipt Date: 20211209
  Transmission Date: 20220303
  Serious: Yes (Hospitalization)
  Sender: FDA-Public Use
  Company Number: ES-ROCHE-2469138

PATIENT
  Age: 55 Year
  Sex: Male
  Weight: 80 kg

DRUGS (17)
  1. OCRELIZUMAB [Suspect]
     Active Substance: OCRELIZUMAB
     Indication: Progressive multiple sclerosis
     Route: 042
     Dates: start: 20181205, end: 20181205
  2. OCRELIZUMAB [Suspect]
     Active Substance: OCRELIZUMAB
     Route: 042
     Dates: start: 20181219, end: 20181219
  3. OCRELIZUMAB [Suspect]
     Active Substance: OCRELIZUMAB
     Dosage: DATE OF MOST RECENT DOSE PRIOR TO SAE ONSET: 22/MAY/2019
     Route: 042
     Dates: start: 20190522, end: 20190522
  4. OCRELIZUMAB [Suspect]
     Active Substance: OCRELIZUMAB
     Route: 042
     Dates: start: 20191106
  5. ASPIRIN [Concomitant]
     Active Substance: ASPIRIN
     Indication: Type 2 diabetes mellitus
     Route: 048
     Dates: start: 2000
  6. CALCIFEDIOL [Concomitant]
     Active Substance: CALCIFEDIOL
     Route: 048
     Dates: start: 201807
  7. ENALAPRIL [Concomitant]
     Active Substance: ENALAPRIL
     Indication: Hypertension
     Route: 048
     Dates: start: 2000
  8. GLICLAZIDE [Concomitant]
     Active Substance: GLICLAZIDE
     Indication: Type 2 diabetes mellitus
     Route: 048
     Dates: start: 2000
  9. METFORMIN HYDROCHLORIDE\VILDAGLIPTIN [Concomitant]
     Active Substance: METFORMIN HYDROCHLORIDE\VILDAGLIPTIN
     Indication: Type 2 diabetes mellitus
     Route: 048
     Dates: start: 200011
  10. METHYLPREDNISOLONE [Concomitant]
     Active Substance: METHYLPREDNISOLONE
     Indication: Premedication
     Dosage: SUBSEQUENT DOSES ON 19/DEC/2018, 22/MAY/2019, 06/NOV/2019, 22/APR/2020, 07/OCT/2020,24/MAR/2021, 18/
     Route: 042
     Dates: start: 20181205, end: 20181205
  11. CETIRIZINE [Concomitant]
     Active Substance: CETIRIZINE HYDROCHLORIDE
     Indication: Premedication
     Dosage: SUBSEQUENT DOSES ON 19/DEC/2018, 22/MAY/2019, 06/NOV/2019, 22/APR/2020, 07/OCT/2020, 24/MAR/2021, 18
     Route: 048
     Dates: start: 20181205
  12. ACETAMINOPHEN [Concomitant]
     Active Substance: ACETAMINOPHEN
     Indication: Premedication
     Dosage: SUBSEQUENT DOSES ON 19/DEC/2018, 22/MAY/2019 AND 06/NOV/2019
     Route: 048
     Dates: start: 20181205, end: 20181205
  13. LORAZEPAM [Concomitant]
     Active Substance: LORAZEPAM
     Indication: Mixed anxiety and depressive disorder
     Route: 048
     Dates: start: 201905
  14. MIRABEGRON [Concomitant]
     Active Substance: MIRABEGRON
     Route: 048
     Dates: start: 20201008
  15. MODERNA COVID-19 VACCINE [Concomitant]
     Active Substance: ELASOMERAN
     Indication: Prophylaxis
     Dosage: NEXT DOSE ON: 06 MAY 2021
     Route: 030
     Dates: start: 20210408
  16. HEPARIN [Concomitant]
     Active Substance: HEPARIN SODIUM
     Dates: start: 20210724, end: 20210804
  17. ENOXAPARIN SODIUM [Concomitant]
     Active Substance: ENOXAPARIN SODIUM
     Route: 058
     Dates: start: 20210724, end: 20210813

REACTIONS (1)
  - Cellulitis [Recovered/Resolved]

NARRATIVE: CASE EVENT DATE: 20190706
